FAERS Safety Report 6309915-0 (Version None)
Quarter: 2009Q3

REPORT INFORMATION
  Report Type: 
  Country: None (occurrence: None)
  Receive Date: 20090814
  Receipt Date: 20090804
  Transmission Date: 20100115
  Serious: Yes (Hospitalization)
  Sender: FDA-Public Use
  Company Number: A0801951A

PATIENT
  Age: 57 Year
  Sex: Female

DRUGS (1)
  1. AVANDIA [Suspect]
     Dosage: 8MG PER DAY
     Route: 048
     Dates: start: 20060901, end: 20061101

REACTIONS (9)
  - ANXIETY [None]
  - CARDIAC FAILURE CONGESTIVE [None]
  - CHEST PAIN [None]
  - DECREASED ACTIVITY [None]
  - DEPRESSION [None]
  - DYSPNOEA [None]
  - HYPERTHYROIDISM [None]
  - MYOCARDIAL INFARCTION [None]
  - PAIN IN EXTREMITY [None]
